FAERS Safety Report 13451346 (Version 1)
Quarter: 2017Q2

REPORT INFORMATION
  Report Type: Spontaneous
  Country: US (occurrence: US)
  Receive Date: 20170418
  Receipt Date: 20170418
  Transmission Date: 20170830
  Serious: No
  Sender: FDA-Public Use
  Company Number: PHEH2017US010747

PATIENT
  Sex: Female
  Weight: 70.31 kg

DRUGS (4)
  1. ZOFRAN [Suspect]
     Active Substance: ONDANSETRON HYDROCHLORIDE
     Indication: VOMITING
     Dosage: 4 MG, UNK
     Route: 060
  2. TRAMADOL. [Concomitant]
     Active Substance: TRAMADOL
     Indication: PAIN
     Dosage: 300 MG, QD
     Route: 065
  3. NADOLOL. [Concomitant]
     Active Substance: NADOLOL
     Indication: ARRHYTHMIA
     Dosage: 40 MG, QD
     Route: 065
  4. RITALIN [Concomitant]
     Active Substance: METHYLPHENIDATE HYDROCHLORIDE
     Indication: FATIGUE
     Dosage: 10 MG, BID
     Route: 065

REACTIONS (1)
  - Drug ineffective [Unknown]
